FAERS Safety Report 23778593 (Version 4)
Quarter: 2025Q1

REPORT INFORMATION
  Report Type: Spontaneous
  Country: AU (occurrence: AU)
  Receive Date: 20240424
  Receipt Date: 20250328
  Transmission Date: 20250409
  Serious: Yes (Hospitalization, Disabling)
  Sender: ROCHE
  Company Number: AU-ROCHE-3546140

PATIENT
  Age: 86 Year
  Sex: Female

DRUGS (1)
  1. VABYSMO [Suspect]
     Active Substance: FARICIMAB-SVOA
     Indication: Age-related macular degeneration
     Route: 065
     Dates: start: 20230628

REACTIONS (3)
  - Retinal occlusive vasculitis [Not Recovered/Not Resolved]
  - Blindness [Not Recovered/Not Resolved]
  - Retinal vasculitis [Unknown]

NARRATIVE: CASE EVENT DATE: 20240201
